FAERS Safety Report 4424141-8 (Version None)
Quarter: 2004Q3

REPORT INFORMATION
  Report Type: 
  Country: None (occurrence: None)
  Receive Date: 20040810
  Receipt Date: 20040810
  Transmission Date: 20050211
  Serious: No
  Sender: FDA-Public Use
  Company Number: None

PATIENT
  Age: 48 Year
  Sex: Male

DRUGS (2)
  1. IDARUBICIN HCL [Suspect]
     Indication: LEUKAEMIA
     Dosage: QD IV
     Route: 042
     Dates: start: 20040630, end: 20040702
  2. CYTARABINE [Suspect]
     Indication: LEUKAEMIA
     Dosage: BID IV
     Route: 042
     Dates: start: 20040629, end: 20040705

REACTIONS (4)
  - DYSPEPSIA [None]
  - EATING DISORDER [None]
  - HICCUPS [None]
  - VOMITING [None]
